FAERS Safety Report 8475442-8 (Version None)
Quarter: 2012Q2

REPORT INFORMATION
  Report Type: 
  Country: None (occurrence: None)
  Receive Date: 20120628
  Receipt Date: 20120621
  Transmission Date: 20120825
  Serious: Yes (Other)
  Sender: FDA-Public Use
  Company Number: AR-ROCHE-1082048

PATIENT
  Sex: Female

DRUGS (3)
  1. XOLAIR [Suspect]
     Indication: HYPERSENSITIVITY
  2. CORTISONE ACETATE [Concomitant]
  3. XOLAIR [Suspect]
     Indication: ASTHMA
     Dates: start: 20120301

REACTIONS (1)
  - BONE INFARCTION [None]
